FAERS Safety Report 16704036 (Version 1)
Quarter: 2019Q3

REPORT INFORMATION
  Report Type: Spontaneous
  Country: US (occurrence: US)
  Receive Date: 20190814
  Receipt Date: 20190814
  Transmission Date: 20191004
  Serious: Yes (Hospitalization)
  Sender: FDA-Public Use
  Company Number: US-VERTEX PHARMACEUTICALS-2019-007550

PATIENT
  Sex: Male

DRUGS (2)
  1. CREON [Concomitant]
     Active Substance: PANCRELIPASE AMYLASE\PANCRELIPASE LIPASE\PANCRELIPASE PROTEASE
     Dosage: 1 DOSAGE FORM (6K-19K-30K), QD
     Route: 048
  2. KALYDECO [Suspect]
     Active Substance: IVACAFTOR
     Indication: CYSTIC FIBROSIS
     Dosage: 75 MG, BID
     Route: 048

REACTIONS (2)
  - Gastrointestinal tube insertion [Unknown]
  - Infection [Unknown]

NARRATIVE: CASE EVENT DATE: 2019
